FAERS Safety Report 17457281 (Version 1)
Quarter: 2020Q1

REPORT INFORMATION
  Report Type: Report from Study
  Country: None (occurrence: CA)
  Receive Date: 20200225
  Receipt Date: 20200225
  Transmission Date: 20200409
  Serious: Yes (Hospitalization)
  Sender: FDA-Public Use
  Company Number: CA-ABBVIE-20K-028-3288624-00

PATIENT
  Sex: Male

DRUGS (2)
  1. DUODOPA [Suspect]
     Active Substance: CARBIDOPA\LEVODOPA
     Indication: PRODUCT USED FOR UNKNOWN INDICATION
     Dosage: MORNING BOLUS(ML):6, CONTINUOUS DOSE RATE (ML/HOUR):4 ,EXTRA BOLUS AMOUNT (ML):2
     Route: 050
     Dates: start: 20160518, end: 20191025
  2. DUODOPA [Suspect]
     Active Substance: CARBIDOPA\LEVODOPA
     Route: 050
     Dates: start: 20191025

REACTIONS (1)
  - Wrong technique in device usage process [Recovered/Resolved]
